FAERS Safety Report 14150239 (Version 2)
Quarter: 2017Q4

REPORT INFORMATION
  Report Type: Spontaneous
  Country: JP (occurrence: JP)
  Receive Date: 20171101
  Receipt Date: 20171129
  Transmission Date: 20180321
  Serious: No
  Sender: FDA-Public Use
  Company Number: JP-ELI_LILLY_AND_COMPANY-JP201710009186

PATIENT
  Age: 70 Year
  Sex: Male

DRUGS (1)
  1. ZALUTIA [Suspect]
     Active Substance: TADALAFIL
     Indication: PRODUCT USED FOR UNKNOWN INDICATION
     Dosage: UNK
     Route: 048
     Dates: start: 20170926

REACTIONS (2)
  - Visual impairment [Unknown]
  - Glare [Unknown]

NARRATIVE: CASE EVENT DATE: 201710
